FAERS Safety Report 9491102 (Version 1)
Quarter: 2013Q3

REPORT INFORMATION
  Report Type: Spontaneous
  Country: US (occurrence: None)
  Receive Date: 20130826
  Receipt Date: 20130826
  Transmission Date: 20140515
  Serious: Yes (Death)
  Sender: FDA-Public Use
  Company Number: KAD201308-001044

PATIENT
  Age: 41 Year
  Sex: Female

DRUGS (1)
  1. AMPHOTERICIN B (AMPHOTERICIN B) [Suspect]
     Indication: MENINGITIS CRYPTOCOCCAL
     Dosage: 2 DOSES

REACTIONS (6)
  - Arrhythmia [None]
  - Renal failure acute [None]
  - Anaemia [None]
  - Overdose [None]
  - Medication error [None]
  - Cardiotoxicity [None]
